FAERS Safety Report 21071025 (Version 2)
Quarter: 2022Q4

REPORT INFORMATION
  Report Type: Spontaneous
  Country: US (occurrence: US)
  Receive Date: 20220712
  Receipt Date: 20221230
  Transmission Date: 20230112
  Serious: Yes (Other)
  Sender: FDA-Public Use
  Company Number: US-AMERICAN REGENT INC-2022001922

PATIENT
  Sex: Female
  Weight: 128.82 kg

DRUGS (15)
  1. VENOFER [Suspect]
     Active Substance: IRON SUCROSE
     Indication: Anaemia of pregnancy
     Dosage: 300 MILLIGRAM  IN 250 ML SODIUM CHLORIDE 0.9%
     Route: 042
     Dates: start: 20170412, end: 20170412
  2. VENOFER [Suspect]
     Active Substance: IRON SUCROSE
     Dosage: 300 MILLIGRAM, SINGLE
     Route: 042
     Dates: start: 20170517, end: 20170517
  3. VENOFER [Suspect]
     Active Substance: IRON SUCROSE
     Dosage: 300 MILLIGRAM  IN 250 ML SODIUM CHLORIDE 0.9%
     Route: 042
     Dates: start: 20170621, end: 20170621
  4. TEMOVATE [Concomitant]
     Active Substance: CLOBETASOL PROPIONATE
     Indication: Product used for unknown indication
     Dosage: APPLY TO AFFECTED AREA(S) 2 TIMES A DAY TOPICALLY
     Route: 061
  5. SELENIUM SULFIDE [Concomitant]
     Active Substance: SELENIUM SULFIDE
     Indication: Pruritus
     Dosage: SHAMPOO SCALP 3 TIMES A WEEK AS NEEDED FOR ITCHY SCALP
     Route: 061
  6. CARAFATE [Concomitant]
     Active Substance: SUCRALFATE
     Indication: Nausea
     Dosage: TAKE 10ML BY MOUTH 3 TIMES DAILY AS NEEDED FOR NAUSEA
     Route: 048
  7. ZOFRAN [Concomitant]
     Active Substance: ONDANSETRON HYDROCHLORIDE
     Indication: Nausea
     Dosage: TAKE 1 TABLET BY MOUTH EVERY 8 TO 12 HOURS AS NEEDED FOR NAUSEA OR VOMITING
     Route: 048
  8. ZOFRAN [Concomitant]
     Active Substance: ONDANSETRON HYDROCHLORIDE
     Indication: Vomiting
  9. PROTONIX [Concomitant]
     Active Substance: PANTOPRAZOLE SODIUM
     Indication: Product used for unknown indication
     Dosage: TAKE 1 TABLET BY MOUTH DAILY HALF-HOUR BEFORE BREAKFAST (40 MILLIGRAM ^TBEC DR^)
     Route: 048
  10. ZANTAC [Concomitant]
     Active Substance: RANITIDINE HYDROCHLORIDE
     Indication: Product used for unknown indication
     Dosage: TAKE 1 TABLET BY MOUTH 2 TIMES A DAY
     Route: 048
  11. BENADRYL [Concomitant]
     Active Substance: DIPHENHYDRAMINE HYDROCHLORIDE
     Indication: Hypersensitivity
     Dosage: TAKE 1 TO 2 CAPSULES BY MOUTH EVERY 4 TO 6 HOURS AS NEEDED FOR ALLERGIES. DO NOT EXCEED 12 CAPSULES
     Route: 048
  12. MINERALS\VITAMINS [Concomitant]
     Active Substance: MINERALS\VITAMINS
     Indication: Product used for unknown indication
     Dosage: TAKE 1 TABLET ORALLY DAILY
     Route: 048
  13. FA 8 [Concomitant]
     Indication: Product used for unknown indication
     Dosage: TAKE 1 TABLET ORALLY DAILY
     Route: 048
  14. ADRENACLICK [Concomitant]
     Active Substance: EPINEPHRINE
     Indication: Hypersensitivity
     Dosage: INJECT 0.3 ML INTO THIGH AT THE FIRST SIGN OF SEVERE ALLERGIC REACTION OR AS DIRECTED
  15. THERMOTABS [Concomitant]
     Indication: Hypotension
     Dosage: TAKE 1 TABLET ORALLY THREE TIMES A DAY AS NEEDED FOR SYMPTOMS OF LOW BLOOD PRESSURE (287-180-15 MILL
     Route: 048
     Dates: start: 20170403, end: 20170815

REACTIONS (10)
  - Blindness [Recovered/Resolved]
  - Premature baby [Recovered/Resolved]
  - Postpartum haemorrhage [Recovered/Resolved]
  - Maternal exposure during pregnancy [Recovered/Resolved]
  - Hyperhidrosis [Recovered/Resolved]
  - Syncope [Recovered/Resolved]
  - Presyncope [Recovered/Resolved]
  - Blood pressure decreased [Recovered/Resolved]
  - Dizziness [Recovered/Resolved]
  - Incorrect product administration duration [Unknown]

NARRATIVE: CASE EVENT DATE: 20170101
